FAERS Safety Report 4528959-2 (Version None)
Quarter: 2004Q4

REPORT INFORMATION
  Report Type: 
  Country: None (occurrence: None)
  Receive Date: 20041214
  Receipt Date: 20041125
  Transmission Date: 20050328
  Serious: Yes (Hospitalization)
  Sender: FDA-Public Use
  Company Number: B0358690A

PATIENT
  Age: 53 Year
  Sex: Male

DRUGS (5)
  1. LITHIUM CARBONATE [Suspect]
     Dosage: 300 MG/ TWICE PER DAY
  2. CARBAMAZEPINE [Concomitant]
  3. PHENYTOIN [Concomitant]
  4. QUETIAPINE [Concomitant]
  5. FLUTICASONE PROPIONATE [Concomitant]

REACTIONS (16)
  - ABNORMAL BEHAVIOUR [None]
  - AGITATION [None]
  - AMMONIA INCREASED [None]
  - ANAEMIA MACROCYTIC [None]
  - CIRCADIAN RHYTHM SLEEP DISORDER [None]
  - COGNITIVE DISORDER [None]
  - CONDITION AGGRAVATED [None]
  - CONFUSIONAL STATE [None]
  - DELIRIUM [None]
  - DISORIENTATION [None]
  - ELECTROENCEPHALOGRAM ABNORMAL [None]
  - HALLUCINATION [None]
  - MANIA [None]
  - NERVOUS SYSTEM DISORDER [None]
  - THERAPEUTIC AGENT TOXICITY [None]
  - THROMBOCYTOPENIA [None]
